FAERS Safety Report 6370060-X (Version None)
Quarter: 2009Q3

REPORT INFORMATION
  Report Type: 
  Country: None (occurrence: None)
  Receive Date: 20090923
  Receipt Date: 20080326
  Transmission Date: 20100115
  Serious: No
  Sender: FDA-Public Use
  Company Number: US-ASTRAZENECA-2006UW20973

PATIENT
  Age: 18121 Day
  Sex: Female
  Weight: 129.3 kg

DRUGS (23)
  1. SEROQUEL [Suspect]
     Indication: CONVULSION
     Dosage: 100 - 300 MG
     Route: 048
     Dates: start: 20040505
  2. SEROQUEL [Suspect]
     Route: 048
     Dates: start: 20050101, end: 20060101
  3. ADVAIR HFA [Concomitant]
     Route: 065
  4. ALBUTEROL [Concomitant]
     Route: 065
  5. ASPIRIN [Concomitant]
     Route: 065
  6. ATIVAN [Concomitant]
     Route: 065
  7. CARDIZEM [Concomitant]
     Route: 065
  8. CLONAZEPAM [Concomitant]
     Route: 065
  9. DARVOCET [Concomitant]
     Dosage: 100
     Route: 065
  10. DETROL [Concomitant]
     Route: 065
  11. LASIX [Concomitant]
     Dosage: 40 - 80 MG
     Route: 065
  12. METFORMIN HCL [Concomitant]
     Route: 065
  13. MEVACOR [Concomitant]
     Route: 065
  14. MOMETASONE FUROATE [Concomitant]
     Route: 065
  15. PEPCID [Concomitant]
     Route: 065
  16. PREDNISONE TAB [Concomitant]
     Dosage: 20 - 40 MG
     Route: 065
  17. PRILOSEC [Concomitant]
     Route: 065
  18. SYNTHROID [Concomitant]
     Route: 065
  19. TEGRETOL [Concomitant]
     Dosage: 200 - 600 MG
     Route: 065
  20. TRICOR [Concomitant]
     Dosage: 48-54MG
     Route: 065
  21. VASOTEC [Concomitant]
     Route: 065
  22. VITAMINE B12 [Concomitant]
     Route: 065
  23. WELLBUTRIN [Concomitant]
     Route: 065

REACTIONS (5)
  - ABDOMINAL PAIN [None]
  - ABDOMINAL PAIN UPPER [None]
  - DIABETES MELLITUS [None]
  - GASTROOESOPHAGEAL REFLUX DISEASE [None]
  - PAIN [None]
